FAERS Safety Report 9772521 (Version 2)
Quarter: 2013Q4

REPORT INFORMATION
  Report Type: Spontaneous
  Country: JP (occurrence: None)
  Receive Date: 20131217
  Receipt Date: 20131218
  Transmission Date: 20140711
  Serious: Yes (Other)
  Sender: FDA-Public Use
  Company Number: 7255907

PATIENT
  Age: 36 Year
  Sex: Female

DRUGS (4)
  1. LEVOTHYROXINE (LEVOTHYROXINE) (LEVOTHYROXINE SODIUM) [Suspect]
     Indication: PRODUCT USED FOR UNKNOWN INDICATION
  2. CHORIOGONADOTROPIN ALFA [Suspect]
     Indication: PREGNANCY
  3. CALCITRIOL (CALCITRIOL) (CALCITRIOL) [Suspect]
     Indication: PRODUCT USED FOR UNKNOWN INDICATION
  4. CALCIUM CARBONATE (CALCIUM CARBONATE) (CALCIUM CARBONATE) [Suspect]
     Indication: PRODUCT USED FOR UNKNOWN INDICATION

REACTIONS (4)
  - Caesarean section [None]
  - Cephalo-pelvic disproportion [None]
  - Oestradiol decreased [None]
  - Maternal exposure during pregnancy [None]
